FAERS Safety Report 5494996-7 (Version None)
Quarter: 2007Q4

REPORT INFORMATION
  Report Type: 
  Country: None (occurrence: None)
  Receive Date: 20071024
  Receipt Date: 20071015
  Transmission Date: 20080405
  Serious: Yes (Hospitalization)
  Sender: FDA-Public Use
  Company Number: JP-GENENTECH-206738

PATIENT
  Sex: Female

DRUGS (3)
  1. RITUXAN [Suspect]
     Indication: LYMPHOMA
     Dosage: 700 MG, 1/WEEK
     Route: 042
     Dates: start: 20020419, end: 20020722
  2. ETOPOSIDE [Concomitant]
     Indication: LYMPHOMA
     Dosage: 100 MG, X4
     Route: 042
     Dates: start: 20020424, end: 20020725
  3. IRINOTECAN HCL [Concomitant]
     Indication: LYMPHOMA
     Dosage: 20 MG, UNK
     Route: 042
     Dates: start: 20020424, end: 20020725

REACTIONS (1)
  - HEPATITIS B [None]
